FAERS Safety Report 8676896 (Version 2)
Quarter: 2013Q3

REPORT INFORMATION
  Report Type: Spontaneous
  Country: DE (occurrence: None)
  Receive Date: 20120629
  Receipt Date: 20130702
  Transmission Date: 20140515
  Serious: Yes (Other)
  Sender: FDA-Public Use
  Company Number: ACO_30471_2012

PATIENT
  Age: 59 Year
  Sex: Female

DRUGS (3)
  1. DALFAMPRIDINE [Suspect]
     Indication: MULTIPLE SCLEROSIS
     Dosage: 10 MG, BID, ORAL
     Route: 048
     Dates: start: 20111123
  2. AVONEX [Concomitant]
     Dates: start: 2004
  3. AMITRIPTYLINE HYDROCHLORIDE [Concomitant]

REACTIONS (7)
  - Poor peripheral circulation [None]
  - Paraesthesia [None]
  - Skin discolouration [None]
  - Local swelling [None]
  - Erythema [None]
  - Feeling hot [None]
  - Peripheral coldness [None]
